FAERS Safety Report 7601996-7 (Version None)
Quarter: 2011Q3

REPORT INFORMATION
  Report Type: 
  Country: None (occurrence: None)
  Receive Date: 20110711
  Receipt Date: 20110707
  Transmission Date: 20111222
  Serious: Yes (Other)
  Sender: FDA-Public Use
  Company Number: US-PFIZER INC-2011132490

PATIENT
  Sex: Male

DRUGS (1)
  1. CHANTIX [Suspect]
     Indication: SMOKING CESSATION THERAPY
     Dosage: 0.5 MG, UNK
     Dates: start: 20071201, end: 20080326

REACTIONS (8)
  - INTENTIONAL OVERDOSE [None]
  - ANXIETY [None]
  - VISUAL IMPAIRMENT [None]
  - DEPRESSION [None]
  - DIABETES MELLITUS [None]
  - MENTAL IMPAIRMENT [None]
  - SUICIDE ATTEMPT [None]
  - NIGHTMARE [None]
